FAERS Safety Report 6077964-6 (Version None)
Quarter: 2009Q1

REPORT INFORMATION
  Report Type: 
  Country: None (occurrence: None)
  Receive Date: 20090210
  Receipt Date: 20090128
  Transmission Date: 20090719
  Serious: Yes (Life-Threatening, Hospitalization)
  Sender: FDA-Public Use
  Company Number: PAR_02830_2009

PATIENT
  Age: 21 Year
  Sex: Male

DRUGS (3)
  1. IBUPROFEN [Suspect]
     Indication: OROPHARYNGEAL PAIN
     Dosage: (DF)
     Dates: start: 20030101, end: 20030101
  2. DICLOFENAC (DICLOFENAC) [Suspect]
     Indication: OROPHARYNGEAL PAIN
     Dosage: (DF)
     Dates: start: 20030101, end: 20030101
  3. PENICILLIN /00000901/ (PENICILLIN) (NOT SPECIFIED) [Suspect]
     Indication: TONSILLITIS
     Dosage: (DF INTRAVENOUS)
     Route: 042
     Dates: start: 20030101, end: 20030101

REACTIONS (10)
  - DIABETIC KETOACIDOSIS [None]
  - DRUG RASH WITH EOSINOPHILIA AND SYSTEMIC SYMPTOMS [None]
  - HEPATITIS [None]
  - NORMOCHROMIC NORMOCYTIC ANAEMIA [None]
  - PANCREATIC ENZYMES INCREASED [None]
  - PROTHROMBIN TIME PROLONGED [None]
  - THROMBOCYTOPENIA [None]
  - TONSILLITIS [None]
  - TYPE 1 DIABETES MELLITUS [None]
  - VOMITING [None]
